FAERS Safety Report 16943872 (Version 6)
Quarter: 2020Q1

REPORT INFORMATION
  Report Type: Report from Study
  Country: None (occurrence: US)
  Receive Date: 20191022
  Receipt Date: 20200210
  Transmission Date: 20200409
  Serious: Yes (Hospitalization, Other)
  Sender: FDA-Public Use
  Company Number: US-ABBVIE-19K-163-2969256-00

PATIENT
  Age: 56 Year
  Sex: Female
  Weight: 49.03 kg

DRUGS (4)
  1. HUMIRA [Suspect]
     Active Substance: ADALIMUMAB
     Route: 058
     Dates: start: 201910, end: 20191118
  2. HUMIRA [Suspect]
     Active Substance: ADALIMUMAB
     Dosage: CITRATE FREE
     Route: 058
  3. HUMIRA [Suspect]
     Active Substance: ADALIMUMAB
     Indication: ANKYLOSING SPONDYLITIS
     Dosage: ONE DATE LATER FOR DAY 15
     Route: 058
     Dates: start: 20191011, end: 20191011
  4. HUMIRA [Suspect]
     Active Substance: ADALIMUMAB
     Indication: CROHN^S DISEASE
     Dosage: DAY 1?CITRATE FREE
     Route: 058
     Dates: start: 20190926, end: 20190926

REACTIONS (14)
  - Acne [Unknown]
  - Wrong technique in product usage process [Unknown]
  - Fear [Recovering/Resolving]
  - Rash [Unknown]
  - Anxiety [Recovering/Resolving]
  - Abdominal pain [Recovering/Resolving]
  - Diarrhoea [Recovering/Resolving]
  - Constipation [Recovering/Resolving]
  - Weight decreased [Recovering/Resolving]
  - Insomnia [Not Recovered/Not Resolved]
  - Nausea [Recovering/Resolving]
  - Nausea [Recovered/Resolved]
  - Faecaloma [Unknown]
  - Decreased appetite [Recovered/Resolved]

NARRATIVE: CASE EVENT DATE: 2019
